FAERS Safety Report 5327176-6 (Version None)
Quarter: 2007Q2

REPORT INFORMATION
  Report Type: 
  Country: None (occurrence: None)
  Receive Date: 20070514
  Receipt Date: 20070502
  Transmission Date: 20071010
  Serious: Yes (Other)
  Sender: FDA-Public Use
  Company Number: 06-001556

PATIENT
  Age: 76 Year
  Sex: Female
  Weight: 51.7 kg

DRUGS (11)
  1. ESTRACE [Suspect]
     Indication: VULVOVAGINAL DRYNESS
     Dosage: 0.01% 1 GRAM TWICE A WEEK, VAGINAL
     Route: 067
     Dates: start: 19820101, end: 20060501
  2. ESTRACE [Suspect]
     Indication: VULVOVAGINAL DRYNESS
     Dosage: 0.01% 1 GRAM TWICE A WEEK, VAGINAL
     Route: 067
     Dates: start: 20060601, end: 20070201
  3. ESTRACE [Suspect]
     Indication: HORMONE REPLACEMENT THERAPY
     Dosage: 1 MG, QD, ORAL
     Route: 048
     Dates: start: 19830101
  4. CALCIUM (CALCIUM) [Concomitant]
  5. VITAMIN E /00110501/(TOCOPHEROL) [Concomitant]
  6. ACTONEL [Concomitant]
  7. SOTALOL HCL [Concomitant]
  8. DIOVAN /01319601/(VALSARTAN) [Concomitant]
  9. LOVASTATIN [Concomitant]
  10. ZETIA [Concomitant]
  11. LEVOTHROID [Concomitant]

REACTIONS (7)
  - BURNING SENSATION [None]
  - COMPLICATION OF DEVICE INSERTION [None]
  - PARATHYROIDECTOMY [None]
  - SPINAL LAMINECTOMY [None]
  - UNEVALUABLE EVENT [None]
  - URINARY TRACT INFECTION [None]
  - VULVOVAGINAL DISCOMFORT [None]
